FAERS Safety Report 9160024 (Version 1)
Quarter: 2013Q1

REPORT INFORMATION
  Report Type: Spontaneous
  Country: US (occurrence: None)
  Receive Date: 20130220
  Receipt Date: 20130220
  Transmission Date: 20140127
  Serious: Yes (Other)
  Sender: FDA-Public Use
  Company Number: 2013-02437

PATIENT
  Age: 17 Year
  Sex: Female

DRUGS (3)
  1. OXALIPLATIN FOR INJECTION USP 100MG SINGLE-DOSE VIALS (ATLLC) (OXALIPLATIN) [Suspect]
     Indication: RHABDOMYOSARCOMA
  2. VINORELBINE [Suspect]
     Indication: RHABDOMYOSARCOMA
  3. IRINOTECAN HYDROCHLORIDE [Suspect]
     Indication: RHABDOMYOSARCOMA

REACTIONS (4)
  - Placental disorder [None]
  - Induced labour [None]
  - Premature delivery [None]
  - Maternal drugs affecting foetus [None]
